FAERS Safety Report 5957710-4 (Version None)
Quarter: 2008Q4

REPORT INFORMATION
  Report Type: 
  Country: None (occurrence: None)
  Receive Date: 20081119
  Receipt Date: 20081111
  Transmission Date: 20090506
  Serious: Yes (Hospitalization)
  Sender: FDA-Public Use
  Company Number: IT-ASTRAZENECA-2008SE05254

PATIENT
  Age: 31676 Day
  Sex: Female

DRUGS (4)
  1. SEROQUEL [Suspect]
     Indication: SENILE PSYCHOSIS
     Route: 048
     Dates: start: 20071120, end: 20080318
  2. ACETYLSALICYLIC ACID SRT [Concomitant]
     Route: 048
  3. DEPAKOTE [Concomitant]
     Route: 048
  4. SIVASTIN [Concomitant]
     Route: 048

REACTIONS (1)
  - CEREBRAL HAEMORRHAGE [None]
